FAERS Safety Report 9527924 (Version 3)
Quarter: 2013Q4

REPORT INFORMATION
  Report Type: Spontaneous
  Country: US (occurrence: US)
  Receive Date: 20130917
  Receipt Date: 20131023
  Transmission Date: 20140711
  Serious: No
  Sender: FDA-Public Use
  Company Number: US-PFIZER INC-2013267334

PATIENT
  Age: 44 Year
  Sex: Female
  Weight: 88.44 kg

DRUGS (2)
  1. LYRICA [Suspect]
     Indication: FIBROMYALGIA
     Dosage: 150 MG, 2X/DAY
     Route: 048
     Dates: start: 201107, end: 201309
  2. MOBIC [Concomitant]
     Indication: ARTHRITIS
     Dosage: UNK

REACTIONS (2)
  - Neuralgia [Unknown]
  - Pain [Not Recovered/Not Resolved]
